FAERS Safety Report 8434356-X (Version None)
Quarter: 2012Q2

REPORT INFORMATION
  Report Type: 
  Country: None (occurrence: None)
  Receive Date: 20120613
  Receipt Date: 20120605
  Transmission Date: 20120825
  Serious: Yes (Hospitalization)
  Sender: FDA-Public Use
  Company Number: FR-MERCK-1206FRA00012

PATIENT
  Age: 61 Year
  Sex: Female

DRUGS (14)
  1. JANUMET [Suspect]
     Indication: DIABETES MELLITUS
     Route: 048
     Dates: start: 20120521, end: 20120501
  2. REPAGLINIDE [Concomitant]
     Route: 048
  3. PREDNISONE [Concomitant]
     Route: 048
  4. AMIODARONE HYDROCHLORIDE [Concomitant]
     Route: 048
  5. ZOCOR [Concomitant]
     Route: 048
  6. TACROLIMUS [Concomitant]
     Route: 048
  7. FLUINDIONE [Concomitant]
     Route: 065
  8. MYCOPHENOLATE MOFETIL [Concomitant]
     Route: 048
  9. METFORMIN [Concomitant]
     Route: 065
     Dates: end: 20120520
  10. ESOMEPRAZOLE MAGNESIUM [Concomitant]
     Route: 048
  11. MOLSIDOMINE [Concomitant]
     Route: 048
  12. ASPIRIN LYSINE [Concomitant]
     Route: 048
  13. PERINDOPRIL ARGININE [Suspect]
     Route: 048
     Dates: end: 20120523
  14. GLYCERIN AND MINERAL OIL AND PETROLATUM, WHITE [Concomitant]
     Route: 065

REACTIONS (3)
  - DRUG INTERACTION [None]
  - RESPIRATORY DISTRESS [None]
  - ANGIOEDEMA [None]
